FAERS Safety Report 14794559 (Version 1)
Quarter: 2018Q2

REPORT INFORMATION
  Report Type: Spontaneous
  Country: US (occurrence: US)
  Receive Date: 20180423
  Receipt Date: 20180423
  Transmission Date: 20180711
  Serious: Yes (Other)
  Sender: FDA-Public Use
  Company Number: US-MYLANLABS-2018M1024886

PATIENT
  Sex: Female

DRUGS (1)
  1. ARMODAFINIL TABLETS [Suspect]
     Active Substance: ARMODAFINIL
     Indication: SOMNOLENCE
     Route: 048

REACTIONS (14)
  - Vision blurred [Unknown]
  - Gait inability [Unknown]
  - Somnolence [Unknown]
  - Loss of consciousness [Unknown]
  - Dizziness [Unknown]
  - Sleep disorder [Unknown]
  - Dissociation [Unknown]
  - Drug ineffective [Unknown]
  - Impaired work ability [Unknown]
  - Condition aggravated [Unknown]
  - Cognitive disorder [Unknown]
  - Blood pressure abnormal [Unknown]
  - Poor quality sleep [Unknown]
  - Coordination abnormal [Unknown]
